FAERS Safety Report 19460035 (Version 1)
Quarter: 2021Q2

REPORT INFORMATION
  Report Type: Spontaneous
  Country: NL (occurrence: NL)
  Receive Date: 20210625
  Receipt Date: 20210625
  Transmission Date: 20210717
  Serious: Yes (Other)
  Sender: FDA-Public Use
  Company Number: NL-SUN PHARMACEUTICAL INDUSTRIES LTD-2021RR-302060

PATIENT
  Age: 49 Year
  Sex: Female
  Weight: 86 kg

DRUGS (3)
  1. ROSUVASTATINE [Suspect]
     Active Substance: ROSUVASTATIN
     Indication: HYPERCHOLESTEROLAEMIA
     Dosage: 1XPER DAY ()
     Route: 065
     Dates: start: 20210505, end: 20210519
  2. QUETIAPINE TABLET FO 100MG / BRAND NAME NOT SPECIFIEDQUETIAPINE TAB... [Concomitant]
     Indication: PRODUCT USED FOR UNKNOWN INDICATION
     Dosage: FILMOMHULDE TABLET, 100 MG (MILLIGRAM) ()
     Route: 065
  3. SERTRALINE TABLET  50MG / BRAND NAME NOT SPECIFIEDSERTRALINE TABLET... [Concomitant]
     Indication: PRODUCT USED FOR UNKNOWN INDICATION
     Dosage: TABLET, 50 MG (MILLIGRAM) ()
     Route: 065

REACTIONS (7)
  - Suicidal ideation [Recovering/Resolving]
  - Anxiety [Recovering/Resolving]
  - Panic attack [Unknown]
  - Headache [Unknown]
  - Photophobia [Unknown]
  - Hyperacusis [Unknown]
  - Depressed mood [Recovering/Resolving]

NARRATIVE: CASE EVENT DATE: 20210515
